FAERS Safety Report 24189178 (Version 1)
Quarter: 2024Q3

REPORT INFORMATION
  Report Type: Spontaneous
  Country: US (occurrence: None)
  Receive Date: 20240807
  Receipt Date: 20240807
  Transmission Date: 20241017
  Serious: No
  Sender: Public
  Company Number: None

PATIENT
  Age: 38 Year
  Sex: Male

DRUGS (9)
  1. DUPIXENT [Suspect]
     Active Substance: DUPILUMAB
     Indication: Asthma
     Dosage: OTHER QUANTITY : 300MG/2ML;?FREQUENCY : EVERY OTHER WEEK;?
     Route: 058
     Dates: start: 20240604, end: 20240605
  2. ALBUTEROL [Concomitant]
  3. ALBUTEROL HFA INH [Concomitant]
  4. DULERA [Concomitant]
  5. HYDROCORTISONE [Concomitant]
  6. NICOTINE [Concomitant]
  7. PREDNISONE [Concomitant]
  8. SPRIVIA RESPIMAT [Concomitant]
  9. SUBOXONE [Concomitant]
     Active Substance: BUPRENORPHINE HYDROCHLORIDE\NALOXONE HYDROCHLORIDE

REACTIONS (5)
  - Pain in extremity [None]
  - Peripheral swelling [None]
  - Feeling hot [None]
  - Tenderness [None]
  - Skin discolouration [None]

NARRATIVE: CASE EVENT DATE: 20240604
